FAERS Safety Report 8350558-5 (Version None)
Quarter: 2012Q2

REPORT INFORMATION
  Report Type: 
  Country: None (occurrence: None)
  Receive Date: 20120510
  Receipt Date: 20120508
  Transmission Date: 20120825
  Serious: Yes (Death)
  Sender: FDA-Public Use
  Company Number: IE-JNJFOC-20120508834

PATIENT
  Sex: Male

DRUGS (4)
  1. SIBELIUM [Concomitant]
  2. SIMPONI [Suspect]
     Indication: RHEUMATOID ARTHRITIS
     Route: 058
     Dates: start: 20110309
  3. ALENDRONATE SODIUM [Concomitant]
  4. CALCIUM CARBONATE [Concomitant]

REACTIONS (1)
  - DEATH [None]
